FAERS Safety Report 9056354 (Version 3)
Quarter: 2017Q3

REPORT INFORMATION
  Report Type: Spontaneous
  Country: US (occurrence: US)
  Receive Date: 20130204
  Receipt Date: 20170929
  Transmission Date: 20171128
  Serious: Yes (Other)
  Sender: FDA-Public Use
  Company Number: US-ROCHE-1184091

PATIENT
  Age: 58 Year
  Sex: Female

DRUGS (4)
  1. FOSAMAX [Suspect]
     Active Substance: ALENDRONATE SODIUM
     Indication: OSTEOPOROSIS
     Route: 048
     Dates: start: 20020111, end: 20061003
  2. BONIVA [Suspect]
     Active Substance: IBANDRONATE SODIUM
     Indication: OSTEOPOROSIS
     Route: 048
     Dates: start: 20070124, end: 20110304
  3. BONIVA [Suspect]
     Active Substance: IBANDRONATE SODIUM
     Indication: OSTEOPENIA
  4. FOSAMAX [Suspect]
     Active Substance: ALENDRONATE SODIUM
     Indication: OSTEOPENIA

REACTIONS (13)
  - Femur fracture [Unknown]
  - Thoracic vertebral fracture [Unknown]
  - Eye contusion [Unknown]
  - Amnesia [Unknown]
  - Emotional distress [Unknown]
  - Hip fracture [Unknown]
  - Rotator cuff syndrome [Unknown]
  - Exostosis [Unknown]
  - Low turnover osteopathy [Unknown]
  - Anxiety [Unknown]
  - Arthralgia [Unknown]
  - Depression [Unknown]
  - Bronchiolitis [Unknown]

NARRATIVE: CASE EVENT DATE: 20070514
